FAERS Safety Report 6370194-X (Version None)
Quarter: 2009Q3

REPORT INFORMATION
  Report Type: 
  Country: None (occurrence: None)
  Receive Date: 20090923
  Receipt Date: 20090910
  Transmission Date: 20100115
  Serious: Yes (Life-Threatening)
  Sender: FDA-Public Use
  Company Number: PT-PFIZER INC-2009245699

PATIENT
  Age: 69 Year

DRUGS (15)
  1. CYKLOKAPRON [Suspect]
     Indication: PROCOAGULANT THERAPY
     Dosage: 500 MG/5ML, UNK
     Route: 042
     Dates: start: 20090616, end: 20090616
  2. INSULIN HUMAN [Concomitant]
     Dosage: UNK MG, 1X/DAY
     Route: 042
     Dates: start: 20090616, end: 20090618
  3. AMINOPHYLLINE [Concomitant]
     Dosage: UNK MG, 1X/DAY
     Dates: start: 20090616, end: 20090616
  4. LIDOCAINE [Concomitant]
     Indication: ANAESTHESIA
     Dosage: UNK
     Dates: start: 20090616, end: 20090616
  5. ETOMIDATE [Concomitant]
     Indication: ANAESTHESIA
     Dosage: UNK
     Route: 042
     Dates: start: 20090616, end: 20090616
  6. FUROSEMIDE [Concomitant]
     Dosage: UNK
     Route: 042
     Dates: start: 20090616, end: 20090616
  7. CEFAZOLIN SODIUM [Concomitant]
     Dosage: UNK
     Route: 042
     Dates: start: 20090616, end: 20090619
  8. MILRINONE [Concomitant]
     Dosage: UNK
     Route: 042
     Dates: start: 20090616, end: 20090617
  9. FENTANYL CITRATE [Concomitant]
     Indication: ANAESTHESIA
     Dosage: UNK
     Route: 042
     Dates: start: 20090616, end: 20090616
  10. MIDAZOLAM HYDROCHLORIDE [Concomitant]
     Indication: ANAESTHESIA
     Dosage: UNK
     Route: 042
     Dates: start: 20090616, end: 20090616
  11. POTASSIUM CHLORIDE [Concomitant]
     Dosage: UNK
     Route: 042
     Dates: start: 20090616, end: 20090618
  12. EPHEDRINE SULFATE [Concomitant]
     Dosage: UNK
     Route: 042
     Dates: start: 20090616, end: 20090616
  13. ROCURONIUM BROMIDE [Concomitant]
     Indication: ANAESTHESIA
     Dosage: UNK
     Route: 042
     Dates: start: 20090616, end: 20090616
  14. DOPAMINE HYDROCHLORIDE [Concomitant]
     Dosage: UNK
     Route: 042
     Dates: start: 20090616, end: 20090620
  15. PROPOFOL [Concomitant]
     Indication: ANAESTHESIA
     Dosage: UNK
     Route: 042
     Dates: start: 20090616, end: 20090616

REACTIONS (1)
  - CONVULSION [None]
